FAERS Safety Report 14958024 (Version 2)
Quarter: 2018Q3

REPORT INFORMATION
  Report Type: Spontaneous
  Country: KR (occurrence: KR)
  Receive Date: 20180531
  Receipt Date: 20180717
  Transmission Date: 20181010
  Serious: Yes (Other)
  Sender: FDA-Public Use
  Company Number: KR-PFIZER INC-2018213806

PATIENT
  Age: 47 Year
  Sex: Female

DRUGS (2)
  1. SAYANA [Suspect]
     Active Substance: MEDROXYPROGESTERONE
     Dosage: ON THE ABDOMEN
     Route: 058
     Dates: start: 20180106
  2. SAYANA [Suspect]
     Active Substance: MEDROXYPROGESTERONE
     Dosage: ON THE RIGHT THIGH
     Route: 058
     Dates: start: 20180413

REACTIONS (4)
  - Injection site necrosis [Not Recovered/Not Resolved]
  - Erythema [Unknown]
  - Injection site pain [Unknown]
  - Injection site mass [Unknown]

NARRATIVE: CASE EVENT DATE: 2018
